FAERS Safety Report 16151470 (Version 4)
Quarter: 2019Q2

REPORT INFORMATION
  Report Type: Report from Study
  Country: None (occurrence: CH)
  Receive Date: 20190403
  Receipt Date: 20190522
  Transmission Date: 20190711
  Serious: Yes (Hospitalization)
  Sender: FDA-Public Use
  Company Number: CH-ABBVIE-19S-151-2729961-00

PATIENT
  Age: 69 Year
  Sex: Female

DRUGS (3)
  1. DUODOPA [Suspect]
     Active Substance: CARBIDOPA\LEVODOPA
     Dosage: MD 5ML CR DAY 2.1 ML/H, ED 1ML?16 H THERAPY
     Route: 050
     Dates: start: 20190111
  2. DUODOPA [Suspect]
     Active Substance: CARBIDOPA\LEVODOPA
     Dosage: MD 7ML CRDAY 2 ML/H, ED 1ML?16 H THERAPY
     Route: 050
     Dates: start: 20181213, end: 20190111
  3. DUODOPA [Suspect]
     Active Substance: CARBIDOPA\LEVODOPA
     Indication: PARKINSON^S DISEASE
     Route: 050
     Dates: start: 20181210, end: 20181213

REACTIONS (7)
  - Wrist fracture [Recovered/Resolved]
  - Medical device site pain [Unknown]
  - Fall [Recovered/Resolved]
  - Stoma site pain [Unknown]
  - Haematoma [Unknown]
  - Mobility decreased [Recovering/Resolving]
  - Stoma site discharge [Unknown]

NARRATIVE: CASE EVENT DATE: 201903
